FAERS Safety Report 6857660-5 (Version None)
Quarter: 2010Q3

REPORT INFORMATION
  Report Type: 
  Country: None (occurrence: None)
  Receive Date: 20100719
  Receipt Date: 20080128
  Transmission Date: 20110219
  Serious: No
  Sender: FDA-Public Use
  Company Number: US-PFIZER INC-2008010474

PATIENT
  Sex: Female

DRUGS (1)
  1. CHANTIX [Suspect]
     Dates: start: 20071001

REACTIONS (5)
  - CONSTIPATION [None]
  - DYSGEUSIA [None]
  - HYPOAESTHESIA ORAL [None]
  - LIP BLISTER [None]
  - PAROSMIA [None]
